FAERS Safety Report 9635301 (Version 2)
Quarter: 2013Q4

REPORT INFORMATION
  Report Type: Spontaneous
  Country: US (occurrence: US)
  Receive Date: 20131021
  Receipt Date: 20131021
  Transmission Date: 20140711
  Serious: No
  Sender: FDA-Public Use
  Company Number: US-PURDUE-USA-2013-0103867

PATIENT
  Age: 65 Year
  Sex: Female
  Weight: 94.33 kg

DRUGS (3)
  1. BUTRANS [Suspect]
     Indication: FIBROMYALGIA
     Dosage: 5 MCG/HR, WEEKLY
     Route: 062
     Dates: end: 20130613
  2. PREDNISONE [Concomitant]
     Indication: PRODUCT USED FOR UNKNOWN INDICATION
     Dosage: 8 MG, DAILY
     Route: 048
  3. LYRICA [Concomitant]
     Indication: PRODUCT USED FOR UNKNOWN INDICATION
     Route: 048

REACTIONS (6)
  - Application site scar [Recovered/Resolved]
  - Application site burn [Unknown]
  - Application site vesicles [Recovered/Resolved]
  - Application site pruritus [Not Recovered/Not Resolved]
  - Application site discharge [Not Recovered/Not Resolved]
  - Application site erythema [Recovered/Resolved]
